FAERS Safety Report 6068704-5 (Version None)
Quarter: 2009Q1

REPORT INFORMATION
  Report Type: 
  Country: None (occurrence: None)
  Receive Date: 20090206
  Receipt Date: 20090130
  Transmission Date: 20090719
  Serious: Yes (Other)
  Sender: FDA-Public Use
  Company Number: B0556689A

PATIENT
  Age: 8 Year
  Sex: Male

DRUGS (7)
  1. ALKERAN [Suspect]
     Indication: TRANSPLANT
     Route: 042
  2. CYCLOSPORINE [Suspect]
  3. TACROLIMUS HYDRATE [Suspect]
     Route: 065
  4. BUSULFAN [Concomitant]
     Indication: TRANSPLANT
     Route: 065
  5. FLUDARA [Concomitant]
     Indication: TRANSPLANT
     Route: 065
  6. METHOTREXATE [Concomitant]
     Indication: PROPHYLAXIS AGAINST GRAFT VERSUS HOST DISEASE
     Route: 065
  7. PREDNISOLONE [Concomitant]
     Route: 065

REACTIONS (10)
  - ANTINUCLEAR ANTIBODY INCREASED [None]
  - GLOMERULONEPHRITIS MEMBRANOUS [None]
  - GRAFT VERSUS HOST DISEASE [None]
  - HYPERTENSIVE ENCEPHALOPATHY [None]
  - HYPOPROTEINAEMIA [None]
  - NEPHROTIC SYNDROME [None]
  - ORAL DISORDER [None]
  - PROTEINURIA [None]
  - RASH [None]
  - RESPIRATORY DISORDER [None]
